FAERS Safety Report 6134349-1 (Version None)
Quarter: 2009Q1

REPORT INFORMATION
  Report Type: 
  Country: None (occurrence: None)
  Receive Date: 20090327
  Receipt Date: 20090320
  Transmission Date: 20090719
  Serious: Yes (Other)
  Sender: FDA-Public Use
  Company Number: PHHY2009DE10459

PATIENT
  Age: 75 Year
  Sex: Male

DRUGS (3)
  1. COMTESS [Suspect]
     Indication: PARKINSONISM
     Dosage: 1000 MG/DAY
     Route: 048
     Dates: start: 20080201
  2. AMANTADINE HCL [Concomitant]
     Dosage: 200 MG/DAY
     Dates: start: 20050101
  3. CARBIDOPA AND LEVODOPA [Concomitant]
     Dosage: 200MG/DAY
     Dates: start: 20000101

REACTIONS (2)
  - CHOLESTASIS [None]
  - JAUNDICE [None]
